FAERS Safety Report 13259324 (Version 2)
Quarter: 2017Q1

REPORT INFORMATION
  Report Type: Other
  Country: FR (occurrence: FR)
  Receive Date: 20170222
  Receipt Date: 20170310
  Transmission Date: 20170428
  Serious: Yes (Other)
  Sender: FDA-Public Use
  Company Number: FR-GE HEALTHCARE LIFE SCIENCES-2017CSU000052

PATIENT

DRUGS (4)
  1. DATSCAN [Suspect]
     Active Substance: IODINE\IOFLUPANE I-123
     Indication: TREMOR
     Dosage: 120 MBQ, SINGLE
     Route: 042
     Dates: start: 20130801, end: 20130801
  2. MODOPAR [Concomitant]
     Active Substance: BENSERAZIDE HYDROCHLORIDE\LEVODOPA
  3. COMTAN [Concomitant]
     Active Substance: ENTACAPONE
  4. CIFLOX                             /00697201/ [Concomitant]
     Active Substance: CIPROFLOXACIN

REACTIONS (2)
  - No adverse event [Recovered/Resolved]
  - Brain scan abnormal [Unknown]

NARRATIVE: CASE EVENT DATE: 20130801
